FAERS Safety Report 12718102 (Version 11)
Quarter: 2019Q3

REPORT INFORMATION
  Report Type: Report from Study
  Country: IT (occurrence: IT)
  Receive Date: 20160906
  Receipt Date: 20190922
  Transmission Date: 20191004
  Serious: Yes (Death, Other)
  Sender: FDA-Public Use
  Company Number: IT-CELGENEUS-ITA-2016090056

PATIENT
  Age: 76 Year
  Sex: Male
  Weight: 80 kg

DRUGS (52)
  1. MEDI4736 (DURVALUMAB) [Suspect]
     Active Substance: DURVALUMAB
     Indication: PLASMA CELL MYELOMA
     Dosage: 1500 MG
     Route: 041
     Dates: start: 20160608, end: 20160608
  2. DEXAMETHASONE. [Suspect]
     Active Substance: DEXAMETHASONE
     Indication: PLASMA CELL MYELOMA
     Dosage: 20 MILLIGRAM
     Route: 048
     Dates: start: 20160608, end: 20160629
  3. ALKERAN [Suspect]
     Active Substance: MELPHALAN
     Indication: PLASMA CELL MYELOMA
     Route: 065
     Dates: start: 20080611, end: 20090415
  4. ALLOPURINOLE [Concomitant]
     Indication: HYPERURICAEMIA
     Route: 048
     Dates: start: 20160908
  5. ALLOPURINOLE [Concomitant]
     Indication: PROPHYLAXIS
     Route: 048
     Dates: start: 20160429, end: 20160907
  6. CARDURA [Concomitant]
     Active Substance: DOXAZOSIN MESYLATE
     Indication: PRODUCT USED FOR UNKNOWN INDICATION
     Route: 065
     Dates: start: 20140131
  7. SULFAMETHOXAZOLE [Concomitant]
     Active Substance: SULFAMETHOXAZOLE
     Indication: PRODUCT USED FOR UNKNOWN INDICATION
     Route: 065
  8. THALIDOMIDE [Suspect]
     Active Substance: THALIDOMIDE
     Indication: PLASMA CELL MYELOMA
     Dosage: 50 MG
     Route: 048
     Dates: start: 20080611, end: 20090415
  9. ZARZIO [Concomitant]
     Active Substance: FILGRASTIM
     Indication: PROPHYLAXIS
     Dosage: 0.5 ML
     Route: 058
     Dates: start: 20160808, end: 20160808
  10. BACTRIM [Concomitant]
     Active Substance: SULFAMETHOXAZOLE\TRIMETHOPRIM
     Indication: PRODUCT USED FOR UNKNOWN INDICATION
     Route: 065
     Dates: start: 20120321
  11. RABERPRAZOLE [Concomitant]
     Indication: PRODUCT USED FOR UNKNOWN INDICATION
     Route: 065
  12. LEVOFLOXACINE [Concomitant]
     Active Substance: LEVOFLOXACIN
     Indication: INFECTION PROPHYLAXIS
     Dosage: 500 MILLIGRAM
     Route: 048
     Dates: start: 20160908
  13. CC-4047 [Suspect]
     Active Substance: POMALIDOMIDE
     Indication: PLASMA CELL MYELOMA
     Dosage: 4 MILLIGRAM
     Route: 048
     Dates: start: 20160608, end: 20160628
  14. DEXAMETHASONE. [Suspect]
     Active Substance: DEXAMETHASONE
     Dosage: 20 MILLIGRAM
     Route: 048
     Dates: start: 20160811, end: 20160901
  15. REVLIMID [Suspect]
     Active Substance: LENALIDOMIDE
     Indication: PLASMA CELL MYELOMA
     Dosage: 25 MG
     Route: 048
     Dates: start: 20120710, end: 20150331
  16. ALFUZOSINE CHLORHYDRATE [Concomitant]
     Indication: PROPHYLAXIS
     Dosage: 10 MG
     Route: 048
  17. DOXAZOSIN [Concomitant]
     Active Substance: DOXAZOSIN MESYLATE
     Indication: HYPERTENSION
     Route: 048
     Dates: start: 20140205
  18. FOLIC ACID. [Concomitant]
     Active Substance: FOLIC ACID
     Indication: VITAMIN SUPPLEMENTATION
     Route: 048
     Dates: start: 20160606, end: 20160825
  19. AMIODARONE [Concomitant]
     Active Substance: AMIODARONE
     Indication: AORTIC ANEURYSM
     Dosage: 200 MG
     Route: 048
     Dates: start: 20160622
  20. ZARZIO [Concomitant]
     Active Substance: FILGRASTIM
     Dosage: 30MCG
     Route: 058
     Dates: start: 20160831, end: 20160831
  21. DEURSIL [Concomitant]
     Active Substance: URSODIOL
     Indication: PRODUCT USED FOR UNKNOWN INDICATION
     Route: 065
     Dates: start: 20150204
  22. FLUIMUCIL [Concomitant]
     Active Substance: ACETYLCYSTEINE
     Indication: PRODUCT USED FOR UNKNOWN INDICATION
     Route: 065
     Dates: start: 20151223
  23. CLENIL [Concomitant]
     Active Substance: BECLOMETHASONE DIPROPIONATE
     Indication: PRODUCT USED FOR UNKNOWN INDICATION
     Route: 065
     Dates: start: 20151223
  24. CALCIUM NADROPARIN [Concomitant]
     Indication: PRODUCT USED FOR UNKNOWN INDICATION
     Route: 065
  25. DEXAMETHASONE. [Suspect]
     Active Substance: DEXAMETHASONE
     Dosage: 20 MILLIGRAM
     Route: 065
     Dates: start: 20120215, end: 20120426
  26. DEXAMETHASONE. [Suspect]
     Active Substance: DEXAMETHASONE
     Dosage: 4 MILLIGRAM
     Route: 041
     Dates: start: 20120610, end: 20160302
  27. ACICLOVIR [Concomitant]
     Active Substance: ACYCLOVIR
     Indication: PRODUCT USED FOR UNKNOWN INDICATION
     Route: 065
     Dates: start: 20120321
  28. ACETYLSALICYLIC ACID [Concomitant]
     Active Substance: ASPIRIN
     Indication: PRODUCT USED FOR UNKNOWN INDICATION
     Route: 065
     Dates: start: 20121002
  29. SPIRONOLACTONE. [Concomitant]
     Active Substance: SPIRONOLACTONE
     Indication: PRODUCT USED FOR UNKNOWN INDICATION
     Route: 065
     Dates: start: 20141111
  30. DUTASTERIDE. [Concomitant]
     Active Substance: DUTASTERIDE
     Indication: BENIGN PROSTATIC HYPERPLASIA
     Route: 048
     Dates: start: 20160615
  31. LASIX [Concomitant]
     Active Substance: FUROSEMIDE
     Indication: PROPHYLAXIS
     Dosage: 25 MG
     Route: 048
     Dates: start: 20160608, end: 20160622
  32. POLASE [Concomitant]
     Active Substance: MAGNESIUM ASPARTATE\POTASSIUM ASPARTATE
     Indication: PRODUCT USED FOR UNKNOWN INDICATION
     Route: 065
     Dates: start: 20120727
  33. OLMESARTAN/1DROCLOROTIAZIDE [Concomitant]
     Indication: PRODUCT USED FOR UNKNOWN INDICATION
     Route: 065
     Dates: start: 20140131
  34. BINOCRIT [Concomitant]
     Active Substance: ERYTHROPOIETIN
     Indication: ANAEMIA
     Dosage: 285.7143 IU (INTERNATIONAL UNIT)
     Route: 048
     Dates: start: 20160819, end: 20160907
  35. DEXAMETHASONE. [Suspect]
     Active Substance: DEXAMETHASONE
     Dosage: 20 MILLIGRAM
     Route: 065
     Dates: end: 20160825
  36. OLMESARTAN/ IDROCLOROTIAZIDE [Concomitant]
     Indication: HYPERTENSION
     Route: 048
     Dates: start: 20140205
  37. TRANEXAMIC ACID. [Concomitant]
     Active Substance: TRANEXAMIC ACID
     Indication: PRODUCT USED FOR UNKNOWN INDICATION
     Route: 065
     Dates: start: 20150401
  38. DEXAMETHASONE. [Suspect]
     Active Substance: DEXAMETHASONE
     Dosage: 40 MILLIGRAM
     Route: 048
     Dates: start: 20120710, end: 20160309
  39. NACL [Concomitant]
     Active Substance: SODIUM CHLORIDE
     Indication: GASTROENTERITIS
     Route: 041
     Dates: start: 201607, end: 201608
  40. XATRAL [Concomitant]
     Active Substance: ALFUZOSIN
     Indication: PRODUCT USED FOR UNKNOWN INDICATION
     Route: 065
     Dates: start: 20081104
  41. RIVOTRIL [Concomitant]
     Active Substance: CLONAZEPAM
     Indication: PRODUCT USED FOR UNKNOWN INDICATION
     Route: 065
     Dates: start: 20120727
  42. TRIMETHOPRIM. [Concomitant]
     Active Substance: TRIMETHOPRIM
     Indication: PRODUCT USED FOR UNKNOWN INDICATION
     Route: 065
  43. FENTANYL. [Concomitant]
     Active Substance: FENTANYL
     Indication: BACK PAIN
     Dosage: 100 MICROGRAM
     Route: 065
     Dates: start: 20160818
  44. MEDI4736 (DURVALUMAB) [Suspect]
     Active Substance: DURVALUMAB
     Dosage: 1500 MG
     Route: 041
     Dates: start: 20160811, end: 20160811
  45. CC-4047 [Suspect]
     Active Substance: POMALIDOMIDE
     Dosage: 4 MILLIGRAM
     Route: 048
     Dates: start: 20160811, end: 20160831
  46. ELOTUZUMAB. [Suspect]
     Active Substance: ELOTUZUMAB
     Indication: PLASMA CELL MYELOMA
     Dosage: 10 MG/KG
     Route: 065
     Dates: start: 20120710, end: 20160302
  47. PANTOPRAZOLE [Concomitant]
     Active Substance: PANTOPRAZOLE
     Indication: GASTRITIS PROPHYLAXIS
     Route: 048
     Dates: start: 20130305
  48. PANTOPRAZOLE [Concomitant]
     Active Substance: PANTOPRAZOLE
     Route: 048
     Dates: start: 20160603
  49. LUVION [Concomitant]
     Indication: AORTIC ANEURYSM
     Route: 048
     Dates: start: 20160622
  50. ZARZIO [Concomitant]
     Active Substance: FILGRASTIM
     Dosage: 0.5 ML
     Route: 058
     Dates: start: 20160823, end: 20160823
  51. ZARZIO [Concomitant]
     Active Substance: FILGRASTIM
     Dosage: 30MCG
     Route: 058
     Dates: start: 20160907, end: 20160907
  52. FLUCONAZOLE. [Concomitant]
     Active Substance: FLUCONAZOLE
     Indication: INFECTION PROPHYLAXIS
     Dosage: 1100 MILLIGRAM
     Route: 048
     Dates: start: 20160908

REACTIONS (2)
  - Acute myeloid leukaemia [Not Recovered/Not Resolved]
  - Plasma cell myeloma [Fatal]

NARRATIVE: CASE EVENT DATE: 20160825
